FAERS Safety Report 11062250 (Version 2)
Quarter: 2015Q2

REPORT INFORMATION
  Report Type: Spontaneous
  Country: GB (occurrence: GB)
  Receive Date: 20150424
  Receipt Date: 20150604
  Transmission Date: 20150821
  Serious: Yes (Other)
  Sender: FDA-Public Use
  Company Number: GB-PFIZER INC-2015139523

PATIENT
  Age: 16 Year
  Sex: Female

DRUGS (6)
  1. LUSTRAL [Suspect]
     Active Substance: SERTRALINE HYDROCHLORIDE
     Dosage: 25 MG, 1X/DAY
     Route: 048
     Dates: start: 20150323, end: 20150329
  2. LUSTRAL [Suspect]
     Active Substance: SERTRALINE HYDROCHLORIDE
     Dosage: 50 MG, 1X/DAY
     Route: 048
     Dates: start: 20150330, end: 20150405
  3. CIRCADIN [Concomitant]
     Active Substance: MELATONIN
     Indication: POOR QUALITY SLEEP
     Dosage: 6 MG, 1X/DAY
     Route: 048
     Dates: start: 20141120
  4. LUSTRAL [Suspect]
     Active Substance: SERTRALINE HYDROCHLORIDE
     Dosage: 75 MG, 1X/DAY
     Route: 048
     Dates: start: 20150406, end: 20150417
  5. LUSTRAL [Suspect]
     Active Substance: SERTRALINE HYDROCHLORIDE
     Indication: DEPRESSION
     Dosage: 12.5 MG, 1X/DAY
     Route: 048
     Dates: start: 20150319, end: 20150322
  6. LUSTRAL [Suspect]
     Active Substance: SERTRALINE HYDROCHLORIDE
     Dosage: 12.5 MG, 1X/DAY
     Route: 048
     Dates: start: 20150521

REACTIONS (7)
  - Eczema [Recovered/Resolved]
  - Nervousness [Not Recovered/Not Resolved]
  - Anxiety [Recovered/Resolved]
  - Skin irritation [Recovered/Resolved]
  - Rash macular [Recovered/Resolved]
  - Diarrhoea [Recovered/Resolved]
  - Malaise [Recovered/Resolved]

NARRATIVE: CASE EVENT DATE: 201504
